FAERS Safety Report 8078563-7 (Version None)
Quarter: 2012Q1

REPORT INFORMATION
  Report Type: 
  Country: None (occurrence: None)
  Receive Date: 20120124
  Receipt Date: 20120109
  Transmission Date: 20120608
  Serious: Yes (Death)
  Sender: FDA-Public Use
  Company Number: JPI-P-009467

PATIENT
  Age: 48 Year
  Sex: Female

DRUGS (2)
  1. UNSPECIFIED DRUGS, MEDICAMENTS, AND BIOLOGICAL SUBSTANCES [Suspect]
     Indication: PRODUCT USED FOR UNKNOWN INDICATION
     Dosage: (UNKNOWN)
     Dates: end: 20091119
  2. XYREM [Suspect]
     Indication: FIBROMYALGIA
     Dosage: (2.5 TO 3  GRAMS TWICE NIGHTLY), ORAL
     Route: 048
     Dates: start: 20060525, end: 20091119

REACTIONS (2)
  - COMPLETED SUICIDE [None]
  - POISONING [None]
